FAERS Safety Report 10866628 (Version 1)
Quarter: 2015Q1

REPORT INFORMATION
  Report Type: Not Available
  Country: US (occurrence: US)
  Receive Date: 20150225
  Receipt Date: 20150225
  Transmission Date: 20150721
  Serious: Yes (Other)
  Sender: FDA-Public Use
  Company Number: US-LUPIN PHARMACEUTICALS INC.-E2B_00003076

PATIENT
  Sex: Male

DRUGS (1)
  1. SUPRAX [Suspect]
     Active Substance: CEFIXIME
     Indication: OTITIS MEDIA
     Dates: start: 20141224, end: 20150102

REACTIONS (3)
  - Skin reaction [Recovering/Resolving]
  - Eye swelling [Recovered/Resolved]
  - Pruritus [Recovered/Resolved]

NARRATIVE: CASE EVENT DATE: 20150101
